FAERS Safety Report 6012495-0 (Version None)
Quarter: 2008Q4

REPORT INFORMATION
  Report Type: 
  Country: None (occurrence: None)
  Receive Date: 20081218
  Receipt Date: 20081210
  Transmission Date: 20090506
  Serious: Yes (Hospitalization, Other)
  Sender: FDA-Public Use
  Company Number: CA-ABBOTT-08P-028-0492346-00

PATIENT
  Sex: Female
  Weight: 70.37 kg

DRUGS (1)
  1. HUMIRA [Suspect]
     Indication: CROHN'S DISEASE
     Route: 058
     Dates: start: 20080529, end: 20081016

REACTIONS (3)
  - DRUG INEFFECTIVE [None]
  - INTESTINAL OBSTRUCTION [None]
  - NASOPHARYNGITIS [None]
